FAERS Safety Report 4777268-5 (Version None)
Quarter: 2005Q3

REPORT INFORMATION
  Report Type: 
  Country: None (occurrence: None)
  Receive Date: 20050915
  Receipt Date: 20050908
  Transmission Date: 20060218
  Serious: Yes (Hospitalization)
  Sender: FDA-Public Use
  Company Number: S05-USA-04248-01

PATIENT
  Age: 91 Year
  Sex: Male

DRUGS (3)
  1. NAMENDA [Suspect]
     Indication: DEMENTIA ALZHEIMER'S TYPE
     Dosage: 5 MG BID PO
     Route: 048
  2. ARICEPT [Concomitant]
  3. LISINOPRIL [Concomitant]

REACTIONS (3)
  - DIZZINESS [None]
  - FALL [None]
  - ORAL INTAKE REDUCED [None]
